FAERS Safety Report 5464126-6 (Version None)
Quarter: 2007Q3

REPORT INFORMATION
  Report Type: 
  Country: None (occurrence: None)
  Receive Date: 20070921
  Receipt Date: 20070919
  Transmission Date: 20080115
  Serious: Yes (Other)
  Sender: FDA-Public Use
  Company Number: US-RB-008080-07

PATIENT
  Age: 28 Year
  Sex: Female

DRUGS (2)
  1. SUBOXONE [Suspect]
     Route: 060
     Dates: start: 20061101, end: 20070831
  2. SUBOXONE [Suspect]
     Route: 060
     Dates: start: 20070901

REACTIONS (2)
  - PAIN [None]
  - SUICIDAL IDEATION [None]
